FAERS Safety Report 6070461-3 (Version None)
Quarter: 2009Q1

REPORT INFORMATION
  Report Type: 
  Country: None (occurrence: None)
  Receive Date: 20090209
  Receipt Date: 20090128
  Transmission Date: 20090719
  Serious: Yes (Life-Threatening, Hospitalization)
  Sender: FDA-Public Use
  Company Number: US-BAYER-200912297NA

PATIENT
  Age: 54 Year
  Sex: Female

DRUGS (2)
  1. MAGNEVIST [Suspect]
     Indication: ANGIOGRAM
     Dosage: TOTAL DAILY DOSE: 30 ML
     Route: 042
     Dates: start: 20090126, end: 20090126
  2. VALIUM [Concomitant]
     Dosage: AS USED: 6  MG
     Dates: start: 20090126, end: 20090126

REACTIONS (3)
  - ANAPHYLACTIC REACTION [None]
  - HYPOTENSION [None]
  - SWELLING FACE [None]
